FAERS Safety Report 7596975-2 (Version None)
Quarter: 2011Q3

REPORT INFORMATION
  Report Type: 
  Country: None (occurrence: None)
  Receive Date: 20110708
  Receipt Date: 20110629
  Transmission Date: 20111222
  Serious: Yes (Hospitalization)
  Sender: FDA-Public Use
  Company Number: BR-US-EMD SERONO, INC.-7068239

PATIENT
  Sex: Female

DRUGS (6)
  1. SEROQUEL [Concomitant]
  2. REBIF [Suspect]
     Dates: start: 20110101
  3. UNSPECIFIED MEDICATIONS [Concomitant]
  4. REBIF [Suspect]
     Indication: RELAPSING-REMITTING MULTIPLE SCLEROSIS
     Dates: start: 20040608, end: 20110508
  5. PROCIMAX [Concomitant]
  6. METHOTREXATE [Concomitant]

REACTIONS (5)
  - INFECTION [None]
  - PULMONARY OEDEMA [None]
  - URINARY TRACT INFECTION [None]
  - DYSPHONIA [None]
  - UTERINE LEIOMYOMA [None]
